FAERS Safety Report 6866464-9 (Version None)
Quarter: 2010Q2

REPORT INFORMATION
  Report Type: 
  Country: None (occurrence: None)
  Receive Date: 20100601
  Receipt Date: 20100316
  Transmission Date: 20101027
  Serious: Yes (Hospitalization, Other)
  Sender: FDA-Public Use
  Company Number: 2010018032

PATIENT
  Age: 44 Year
  Sex: Male

DRUGS (1)
  1. FELDENE [Suspect]
     Indication: MUSCLE SPASMS
     Dosage: 25 MG
     Dates: start: 20080313, end: 20080101

REACTIONS (2)
  - STEVENS-JOHNSON SYNDROME [None]
  - TOXIC EPIDERMAL NECROLYSIS [None]
